FAERS Safety Report 24726180 (Version 1)
Quarter: 2024Q4

REPORT INFORMATION
  Report Type: Spontaneous
  Country: US (occurrence: US)
  Receive Date: 20241212
  Receipt Date: 20241212
  Transmission Date: 20250115
  Serious: Yes (Other)
  Sender: MYLAN
  Company Number: US-MYLANLABS-2024M1111328

PATIENT
  Age: 2 Decade
  Sex: Female

DRUGS (11)
  1. DOXORUBICIN [Suspect]
     Active Substance: DOXORUBICIN
     Indication: Pleomorphic liposarcoma
     Dosage: UNK, CYCLE (2 CYCLES)
     Route: 065
  2. GEMCITABINE [Suspect]
     Active Substance: GEMCITABINE
     Indication: Pleomorphic liposarcoma
     Dosage: UNK
     Route: 065
  3. ETOPOSIDE [Suspect]
     Active Substance: ETOPOSIDE
     Indication: Pleomorphic liposarcoma
     Dosage: UNK
     Route: 065
  4. IFOSFAMIDE [Suspect]
     Active Substance: IFOSFAMIDE
     Indication: Pleomorphic liposarcoma
     Dosage: UNK, CYCLE (2 CYCLES)
     Route: 065
  5. IFOSFAMIDE [Suspect]
     Active Substance: IFOSFAMIDE
     Indication: Pleomorphic liposarcoma
     Dosage: UNK
     Route: 065
  6. CISPLATIN [Suspect]
     Active Substance: CISPLATIN
     Indication: Pleomorphic liposarcoma
     Dosage: UNK
     Route: 065
  7. CYCLOPHOSPHAMIDE [Suspect]
     Active Substance: CYCLOPHOSPHAMIDE
     Indication: Pleomorphic liposarcoma
     Dosage: UNK
     Route: 065
  8. EPIRUBICIN [Suspect]
     Active Substance: EPIRUBICIN
     Indication: Pleomorphic liposarcoma
     Dosage: UNK
     Route: 065
  9. DIETARY SUPPLEMENT\RESVERATROL [Suspect]
     Active Substance: DIETARY SUPPLEMENT\RESVERATROL
     Indication: Pleomorphic liposarcoma
     Dosage: UNK
     Route: 065
  10. MITOMYCIN [Suspect]
     Active Substance: MITOMYCIN
     Indication: Pleomorphic liposarcoma
     Dosage: UNK
     Route: 065
  11. TOPOTECAN [Suspect]
     Active Substance: TOPOTECAN HYDROCHLORIDE
     Indication: Pleomorphic liposarcoma
     Dosage: UNK
     Route: 065

REACTIONS (2)
  - Disease progression [Unknown]
  - Drug ineffective [Unknown]
